FAERS Safety Report 16740299 (Version 1)
Quarter: 2019Q3

REPORT INFORMATION
  Report Type: Spontaneous
  Country: NL (occurrence: FR)
  Receive Date: 20190826
  Receipt Date: 20190826
  Transmission Date: 20191005
  Serious: Yes (Hospitalization)
  Sender: FDA-Public Use
  Company Number: FR-FRESENIUS KABI-FK201909124

PATIENT
  Age: 39 Year
  Sex: Female
  Weight: 63 kg

DRUGS (1)
  1. ROPIVACAINE (MANUFACTURER UNKNOWN) [Suspect]
     Active Substance: ROPIVACAINE
     Indication: COMPLEX REGIONAL PAIN SYNDROME
     Route: 026
     Dates: start: 20171023, end: 20171026

REACTIONS (7)
  - Paraesthesia [Recovering/Resolving]
  - Bronchial obstruction [Recovering/Resolving]
  - Hyperhidrosis [Recovering/Resolving]
  - Laryngeal pain [Recovering/Resolving]
  - Headache [Recovering/Resolving]
  - Salivary hypersecretion [Recovering/Resolving]
  - Disturbance in attention [Recovering/Resolving]

NARRATIVE: CASE EVENT DATE: 20171025
